FAERS Safety Report 9729467 (Version 1)
Quarter: 2013Q4

REPORT INFORMATION
  Report Type: Spontaneous
  Country: US (occurrence: US)
  Receive Date: 20131204
  Receipt Date: 20131204
  Transmission Date: 20140711
  Serious: No
  Sender: FDA-Public Use
  Company Number: US-GILEAD-2009-0021542

PATIENT
  Sex: Female
  Weight: 52.16 kg

DRUGS (18)
  1. LETAIRIS [Suspect]
     Indication: PULMONARY ARTERIAL HYPERTENSION
     Route: 048
     Dates: start: 20090320
  2. LETAIRIS [Suspect]
     Dates: start: 20071205
  3. REVATIO [Concomitant]
  4. COUMADIN [Concomitant]
  5. KLOR-CON M20 [Concomitant]
  6. FUROSEMIDE [Concomitant]
  7. DIGOXIN [Concomitant]
  8. POTASSIUM CHLORIDE [Concomitant]
  9. AZITHROMYCIN [Concomitant]
  10. ONE-A-DAY [Concomitant]
  11. METOCLOPRAM [Concomitant]
  12. TYLENOL EXTRA STRENGTH [Concomitant]
  13. MAGNESIUM OXIDE [Concomitant]
  14. KLONOPIN [Concomitant]
  15. AMBIEN [Concomitant]
  16. REMERON [Concomitant]
  17. SEROQUEL [Concomitant]
  18. PRILOSEC [Concomitant]

REACTIONS (3)
  - Headache [Recovered/Resolved]
  - Palpitations [Recovered/Resolved]
  - Oedema [Recovered/Resolved]
